FAERS Safety Report 24195056 (Version 2)
Quarter: 2024Q3

REPORT INFORMATION
  Report Type: Spontaneous
  Country: US (occurrence: US)
  Receive Date: 20240809
  Receipt Date: 20240930
  Transmission Date: 20241016
  Serious: Yes (Hospitalization, Other)
  Sender: LUNDBECK
  Company Number: US-LUNDBECK-DKLU4002567

PATIENT

DRUGS (1)
  1. SABRIL [Suspect]
     Active Substance: VIGABATRIN
     Indication: Infantile spasms
     Dates: start: 202311

REACTIONS (3)
  - Blindness [Unknown]
  - Hypoperfusion [Unknown]
  - Bradycardia [Unknown]
